FAERS Safety Report 9236762 (Version 4)
Quarter: 2013Q2

REPORT INFORMATION
  Report Type: Spontaneous
  Country: US (occurrence: US)
  Receive Date: 20130417
  Receipt Date: 20130611
  Transmission Date: 20140414
  Serious: Yes (Hospitalization, Other)
  Sender: FDA-Public Use
  Company Number: US-TEVA-398025USA

PATIENT
  Age: 51 Year
  Sex: Female

DRUGS (11)
  1. ESCITALOPRAM [Suspect]
     Indication: MAJOR DEPRESSION
     Dosage: 1/2 TABLET
     Dates: start: 20121008, end: 20121105
  2. METFORMIN [Concomitant]
  3. ESTROPIPATE [Concomitant]
  4. ROBINAL [Concomitant]
  5. LIPITOR [Concomitant]
  6. LAMICTAL [Concomitant]
  7. EFFEXOR [Concomitant]
  8. NEURONTIN [Concomitant]
  9. HYZAAR [Concomitant]
  10. TRAMADOL [Concomitant]
  11. DEPLIN [Concomitant]

REACTIONS (6)
  - Meningioma [Unknown]
  - Aspiration [Unknown]
  - Dysphagia [Recovered/Resolved]
  - Cough [Unknown]
  - Dehydration [Unknown]
  - Weight decreased [Unknown]
